FAERS Safety Report 7523618-6 (Version None)
Quarter: 2011Q2

REPORT INFORMATION
  Report Type: 
  Country: None (occurrence: None)
  Receive Date: 20110601
  Receipt Date: 20110601
  Transmission Date: 20111010
  Serious: Yes (Hospitalization)
  Sender: FDA-Public Use
  Company Number: None

PATIENT
  Sex: Female
  Weight: 54.2 kg

DRUGS (15)
  1. CALCITRIOL [Concomitant]
  2. GENTAMIACIN [Concomitant]
  3. SODIUM BICARBONATE [Concomitant]
  4. PROVENTIL [Concomitant]
  5. MOXIFLOXACIN [Suspect]
     Indication: UPPER RESPIRATORY TRACT INFECTION
     Dosage: PO
     Route: 048
     Dates: start: 20100708, end: 20100709
  6. POTASSIUM CHLORIDE [Concomitant]
  7. HYDROXYZINE [Concomitant]
  8. VALACYCLOVIR [Suspect]
     Indication: HERPES ZOSTER
     Dosage: PO
     Route: 048
     Dates: start: 20100708, end: 20100709
  9. REGLAN [Concomitant]
  10. AMITRIPTYLINE HYDROCHLORIDE [Concomitant]
  11. NEPHROVITE [Concomitant]
  12. TRACLEER [Concomitant]
  13. GLUCOSOLVE [Concomitant]
  14. RENVELA [Concomitant]
  15. LOPERAMIDE [Concomitant]

REACTIONS (4)
  - DYSARTHRIA [None]
  - CONFUSIONAL STATE [None]
  - HALLUCINATION, VISUAL [None]
  - AGGRESSION [None]
